FAERS Safety Report 17734161 (Version 1)
Quarter: 2020Q2

REPORT INFORMATION
  Report Type: Spontaneous
  Country: US (occurrence: US)
  Receive Date: 20200501
  Receipt Date: 20200501
  Transmission Date: 20200714
  Serious: Yes (Other)
  Sender: FDA-Public Use
  Company Number: NVSC2020US116132

PATIENT
  Sex: Male

DRUGS (1)
  1. COSENTYX [Suspect]
     Active Substance: SECUKINUMAB
     Indication: PRODUCT USED FOR UNKNOWN INDICATION
     Dosage: 300 MG, UNKNOWN
     Route: 065

REACTIONS (10)
  - Atrioventricular block [Unknown]
  - Ill-defined disorder [Unknown]
  - Asthma [Unknown]
  - Incorrect dose administered [Unknown]
  - Psoriasis [Unknown]
  - Chest injury [Unknown]
  - Cough [Unknown]
  - Tremor [Unknown]
  - Fall [Unknown]
  - Pain [Unknown]
